FAERS Safety Report 17501107 (Version 1)
Quarter: 2020Q1

REPORT INFORMATION
  Report Type: Report from Study
  Country: US (occurrence: US)
  Receive Date: 20200305
  Receipt Date: 20200305
  Transmission Date: 20200409
  Serious: No
  Sender: FDA-Public Use
  Company Number: NVSC2020US062929

PATIENT
  Sex: Female

DRUGS (1)
  1. COSENTYX [Suspect]
     Active Substance: SECUKINUMAB
     Indication: PSORIASIS
     Dosage: 150 MG, QW (150 MG Q WEEKLY X 5 WEEKS THEN 150 MG Q 4 WEEKS)
     Route: 058
     Dates: start: 20200124

REACTIONS (1)
  - Psoriasis [Unknown]
